FAERS Safety Report 7863762-7 (Version None)
Quarter: 2011Q4

REPORT INFORMATION
  Report Type: 
  Country: None (occurrence: None)
  Receive Date: 20111027
  Receipt Date: 20101209
  Transmission Date: 20120403
  Serious: No
  Sender: FDA-Public Use
  Company Number: US-AMGEN-USASP2010008471

PATIENT
  Sex: Female

DRUGS (2)
  1. ENBREL [Suspect]
     Indication: PSORIATIC ARTHROPATHY
     Dates: start: 20030301, end: 20050101
  2. HUMIRA [Concomitant]
     Dosage: UNK
     Dates: start: 20050101, end: 20090101

REACTIONS (2)
  - ARTHRALGIA [None]
  - ARTHRITIS [None]
